FAERS Safety Report 18102881 (Version 2)
Quarter: 2020Q3

REPORT INFORMATION
  Report Type: Spontaneous
  Country: ES (occurrence: ES)
  Receive Date: 20200803
  Receipt Date: 20200813
  Transmission Date: 20201103
  Serious: Yes (Hospitalization, Other)
  Sender: FDA-Public Use
  Company Number: ES-ASTELLAS-2020US023850

PATIENT
  Age: 53 Year
  Sex: Female

DRUGS (6)
  1. MYCOPHENOLATE [Concomitant]
     Active Substance: MYCOPHENOLIC ACID
     Indication: RENAL TRANSPLANT
     Dosage: UNK UNK, UNKNOWN FREQ.
     Route: 065
  2. PREDNISONE. [Concomitant]
     Active Substance: PREDNISONE
     Indication: RENAL TRANSPLANT
     Dosage: UNK UNK, UNKNOWN FREQ.
     Route: 065
  3. EMPAGLIFLOZIN [Suspect]
     Active Substance: EMPAGLIFLOZIN
     Indication: DIABETES MELLITUS
     Dosage: UNK UNK, UNKNOWN FREQ.
     Route: 065
     Dates: start: 2019, end: 2019
  4. AMPHOTERICIN B, LIPOSOME [Suspect]
     Active Substance: AMPHOTERICIN B
     Indication: EMPHYSEMATOUS PYELONEPHRITIS
     Dosage: UNK UNK, UNKNOWN FREQ.
     Route: 065
     Dates: start: 2019
  5. INSULIN [Concomitant]
     Active Substance: INSULIN NOS
     Indication: DIABETES MELLITUS
     Dosage: UNK UNK, UNKNOWN FREQ.
     Route: 065
  6. PROGRAF [Suspect]
     Active Substance: TACROLIMUS
     Indication: RENAL TRANSPLANT
     Dosage: 1 MG, TWICE DAILY (1 HOUR BEFORE BREAKFAST AND 1 HOUR BEFORE DINNER)
     Route: 048
     Dates: start: 20160319, end: 20190520

REACTIONS (9)
  - Urinary tract infection [Recovered/Resolved]
  - Urinary tract candidiasis [Recovered/Resolved]
  - Emphysematous pyelonephritis [Recovered/Resolved]
  - Urinary tract infection enterococcal [Recovered/Resolved]
  - Septic shock [Recovered/Resolved]
  - Candida sepsis [Recovered/Resolved]
  - Drug ineffective [Recovered/Resolved]
  - Candida infection [Recovered/Resolved]
  - Perinephric abscess [Recovered/Resolved]

NARRATIVE: CASE EVENT DATE: 20181217
